FAERS Safety Report 18386694 (Version 2)
Quarter: 2020Q4

REPORT INFORMATION
  Report Type: Spontaneous
  Country: US (occurrence: US)
  Receive Date: 20201015
  Receipt Date: 20201015
  Transmission Date: 20210114
  Serious: Yes (Death)
  Sender: FDA-Public Use
  Company Number: US-PFIZER INC-2020397224

PATIENT
  Age: 64 Year
  Sex: Female

DRUGS (1)
  1. IBRANCE [Suspect]
     Active Substance: PALBOCICLIB
     Indication: BREAST CANCER FEMALE
     Dosage: 75 MG, CYCLIC (IBRANCE 75 MG, BREAST CANCER TK 1 C PO (PER ORAL) D FOR 21 DAYS, FOLLOWED BY 7 DAYS O
     Route: 048
     Dates: start: 20200203, end: 20201010

REACTIONS (1)
  - Neoplasm progression [Fatal]
